FAERS Safety Report 9301344 (Version 1)
Quarter: 2013Q2

REPORT INFORMATION
  Report Type: Spontaneous
  Country: US (occurrence: US)
  Receive Date: 20130521
  Receipt Date: 20130521
  Transmission Date: 20140414
  Serious: No
  Sender: FDA-Public Use
  Company Number: US-PFIZER INC-2013153117

PATIENT
  Age: 47 Year
  Sex: Female
  Weight: 90.7 kg

DRUGS (5)
  1. GENOTROPIN MQ [Suspect]
     Dosage: 1.2 MG, DAILY
     Route: 058
     Dates: start: 201304
  2. ZYRTEC [Concomitant]
     Dosage: 5 MG, UNK
  3. CELEXA [Concomitant]
     Dosage: 10 MG, UNK
  4. VITAMIN D [Concomitant]
     Dosage: 400 IU, UNK
  5. LEVOXYL [Concomitant]
     Dosage: 100 UG, UNK

REACTIONS (1)
  - Insomnia [Unknown]
